FAERS Safety Report 6772748-5 (Version None)
Quarter: 2010Q2

REPORT INFORMATION
  Report Type: 
  Country: None (occurrence: None)
  Receive Date: 20100614
  Receipt Date: 20100601
  Transmission Date: 20101027
  Serious: Yes (Hospitalization)
  Sender: FDA-Public Use
  Company Number: 7004154

PATIENT
  Age: 46 Year
  Sex: Male
  Weight: 100 kg

DRUGS (6)
  1. REBIF [Suspect]
     Indication: MULTIPLE SCLEROSIS
     Dosage: 44 MCG, 3 IN 1 WK, SUBCUTANEOUS
     Route: 058
     Dates: start: 20091001
  2. ZOCOR [Concomitant]
  3. LISINOPRIL [Concomitant]
  4. ASPIRIN [Concomitant]
  5. ANDRODERM [Concomitant]
  6. UNSPECIFIED DEPRESSION TREATMENT (ANTIDEPRESSANTS) [Concomitant]

REACTIONS (15)
  - BACK PAIN [None]
  - BALANCE DISORDER [None]
  - DECREASED APPETITE [None]
  - DEPRESSION [None]
  - DYSARTHRIA [None]
  - MULTIPLE SCLEROSIS RELAPSE [None]
  - MUSCULAR WEAKNESS [None]
  - MUSCULOSKELETAL STIFFNESS [None]
  - PARAESTHESIA [None]
  - SELF-INJURIOUS IDEATION [None]
  - SENSATION OF HEAVINESS [None]
  - THYROID DISORDER [None]
  - TREMOR [None]
  - URINARY TRACT INFECTION [None]
  - VISION BLURRED [None]
